FAERS Safety Report 6521871-9 (Version None)
Quarter: 2009Q4

REPORT INFORMATION
  Report Type: 
  Country: None (occurrence: None)
  Receive Date: 20091229
  Receipt Date: 20091229
  Transmission Date: 20100525
  Serious: Yes (Hospitalization)
  Sender: FDA-Public Use
  Company Number: None

PATIENT
  Sex: Male
  Weight: 80 kg

DRUGS (8)
  1. THALOMID [Suspect]
     Indication: COUGH
     Dosage: 100 MG QD (ONCE DAILY) PO (ORAL)
     Route: 048
     Dates: start: 20090928, end: 20091011
  2. THALOMID [Suspect]
     Indication: INTERSTITIAL LUNG DISEASE
     Dosage: 100 MG QD (ONCE DAILY) PO (ORAL)
     Route: 048
     Dates: start: 20090928, end: 20091011
  3. THALOMID [Suspect]
     Indication: COUGH
     Dosage: 100 MG QD (ONCE DAILY) PO (ORAL)
     Route: 048
     Dates: start: 20091012, end: 20091214
  4. THALOMID [Suspect]
     Indication: INTERSTITIAL LUNG DISEASE
     Dosage: 100 MG QD (ONCE DAILY) PO (ORAL)
     Route: 048
     Dates: start: 20091012, end: 20091214
  5. HYDROCHLOROTHIAZIDE [Concomitant]
  6. MOTRIN [Concomitant]
  7. AMBIEN [Concomitant]
  8. VALIUM [Concomitant]

REACTIONS (1)
  - STENT PLACEMENT [None]
